FAERS Safety Report 5631696-4 (Version None)
Quarter: 2008Q1

REPORT INFORMATION
  Report Type: 
  Country: None (occurrence: None)
  Receive Date: 20080220
  Receipt Date: 20080212
  Transmission Date: 20080703
  Serious: Yes (Other)
  Sender: FDA-Public Use
  Company Number: FR-JNJFOC-20080203104

PATIENT
  Sex: Female

DRUGS (1)
  1. DURAGESIC-100 [Suspect]
     Indication: PAIN
     Dosage: MORE THAN ONE YEAR OF TREATMENT
     Route: 062

REACTIONS (2)
  - HYPERHIDROSIS [None]
  - PSYCHOTIC DISORDER [None]
